FAERS Safety Report 9714909 (Version 3)
Quarter: 2013Q4

REPORT INFORMATION
  Report Type: Spontaneous
  Country: JP (occurrence: JP)
  Receive Date: 20131126
  Receipt Date: 20131217
  Transmission Date: 20140711
  Serious: Yes (Other)
  Sender: FDA-Public Use
  Company Number: JP-GILEAD-2013-0088573

PATIENT
  Age: 67 Year
  Sex: Female
  Weight: 60 kg

DRUGS (2)
  1. HEPSERA [Suspect]
     Indication: HEPATITIS B
     Dosage: UNK
     Route: 048
     Dates: start: 20060624
  2. ZEFIX                              /01221401/ [Concomitant]
     Route: 048
     Dates: start: 20050204

REACTIONS (3)
  - Blood alkaline phosphatase abnormal [Unknown]
  - Fanconi syndrome acquired [Recovered/Resolved]
  - Blood phosphorus decreased [Recovered/Resolved]
